FAERS Safety Report 8186521-7 (Version None)
Quarter: 2012Q1

REPORT INFORMATION
  Report Type: 
  Country: None (occurrence: None)
  Receive Date: 20120302
  Receipt Date: 20120302
  Transmission Date: 20120608
  Serious: Yes (Life-Threatening, Hospitalization, Disabling)
  Sender: FDA-Public Use
  Company Number: None

PATIENT
  Age: 47 Year
  Sex: Female
  Weight: 58.9676 kg

DRUGS (1)
  1. MYFORTIC [Suspect]
     Indication: RENAL TRANSPLANT
     Dosage: 150MG  ZTIMES
     Dates: start: 20040213, end: 20110613

REACTIONS (5)
  - PAIN [None]
  - WEIGHT DECREASED [None]
  - VOMITING [None]
  - DIARRHOEA [None]
  - TOXICITY TO VARIOUS AGENTS [None]
